FAERS Safety Report 9437650 (Version 2)
Quarter: 2013Q4

REPORT INFORMATION
  Report Type: Spontaneous
  Country: GB (occurrence: None)
  Receive Date: 20130731
  Receipt Date: 20131119
  Transmission Date: 20140711
  Serious: Yes (Congenital Anomaly, Other)
  Sender: FDA-Public Use
  Company Number: AUR-APL-2013-06242

PATIENT
  Sex: 0

DRUGS (2)
  1. GABAPENTIN [Suspect]
     Indication: NEURALGIA
     Dosage: 600 MG (200 MG, 3 IN 1 D), TRANSPLACENTAL
     Route: 064
     Dates: start: 200905
  2. REBIF [Suspect]
     Indication: MULTIPLE SCLEROSIS
     Dosage: 9.4286 MCG (22 MCG, 3 IN 1 WK), TRANSPLACENTAL
     Route: 064
     Dates: start: 201205, end: 201303

REACTIONS (6)
  - Exposure during pregnancy [None]
  - Abortion induced [None]
  - Heart disease congenital [None]
  - Ventricular septal defect [None]
  - Transposition of the great vessels [None]
  - Maternal drugs affecting foetus [None]
